FAERS Safety Report 10070092 (Version 1)
Quarter: 2014Q2

REPORT INFORMATION
  Report Type: Spontaneous
  Country: US (occurrence: None)
  Receive Date: 20140409
  Receipt Date: 20140409
  Transmission Date: 20141212
  Serious: Yes (Life-Threatening, Hospitalization, Other)
  Sender: FDA-Public Use
  Company Number: None

PATIENT
  Age: 48 Year
  Sex: Female
  Weight: 79.4 kg

DRUGS (12)
  1. CLOPIDOGREL [Suspect]
     Indication: SURGERY
     Dosage: ONCE
     Route: 048
  2. MIDAZOLAM [Concomitant]
  3. FENTANYL [Concomitant]
  4. LIDOCAINE [Concomitant]
  5. VERSED IV [Concomitant]
  6. FENTANYL [Concomitant]
  7. ANGIOMAX [Concomitant]
  8. ANGIOMAX [Concomitant]
  9. NOTROGLYCERIN IC [Concomitant]
  10. NITROGLYCERIN IC [Concomitant]
  11. CLOPIDOGREL [Concomitant]
  12. ASPIRIN [Concomitant]

REACTIONS (2)
  - Arrhythmia [None]
  - Product substitution issue [None]
